FAERS Safety Report 8929421 (Version 1)
Quarter: 2012Q4

REPORT INFORMATION
  Report Type: 
  Country: US (occurrence: US)
  Receive Date: 20121127
  Receipt Date: 20121127
  Transmission Date: 20130627
  Serious: No
  Sender: FDA-Public Use
  Company Number: US-009507513-1211USA006387

PATIENT
  Age: 81 Year
  Sex: Female

DRUGS (1)
  1. CORICIDIN HBP FLU [Suspect]
     Indication: NASOPHARYNGITIS
     Dosage: 1 DF, q4h
     Route: 048

REACTIONS (3)
  - Cerebrovascular accident [Unknown]
  - Blood pressure increased [Recovered/Resolved]
  - Ear pain [Unknown]
